FAERS Safety Report 25959285 (Version 7)
Quarter: 2025Q4

REPORT INFORMATION
  Report Type: Report from Study
  Country: US (occurrence: US)
  Receive Date: 20251025
  Receipt Date: 20251218
  Transmission Date: 20260118
  Serious: Yes (Hospitalization, Other)
  Sender: UNITED THERAPEUTICS
  Company Number: US-UNITED THERAPEUTICS-UNT-2025-035929

PATIENT
  Sex: Male

DRUGS (13)
  1. TREPROSTINIL [Suspect]
     Active Substance: TREPROSTINIL
     Indication: Pulmonary arterial hypertension
     Dosage: 5 MG, TID
     Dates: start: 2025, end: 20251105
  2. TREPROSTINIL [Suspect]
     Active Substance: TREPROSTINIL
     Dosage: UNK
  3. ORENITRAM [Suspect]
     Active Substance: TREPROSTINIL
     Indication: Pulmonary arterial hypertension
     Dosage: UNK
  4. TRAMADOL [Suspect]
     Active Substance: TRAMADOL
     Indication: Pain in extremity
     Dosage: UNK
  5. TRAMADOL [Suspect]
     Active Substance: TRAMADOL
     Indication: Arthralgia
  6. TRAMADOL [Suspect]
     Active Substance: TRAMADOL
     Indication: Chest pain
  7. TRAMADOL [Suspect]
     Active Substance: TRAMADOL
     Indication: Headache
  8. UPTRAVI [Suspect]
     Active Substance: SELEXIPAG
     Indication: Pulmonary arterial hypertension
     Dosage: 1200 MCG (1 TABLET OF 800 MCG AND 2 TABLETS OF 200 MCG), BID
     Dates: start: 20251105, end: 202511
  9. UPTRAVI [Suspect]
     Active Substance: SELEXIPAG
     Dosage: 1400 MCG (1 TABLET OF 800 MCG AND 3 TABLETS OF 200 MCG), BID
     Dates: start: 202511, end: 20251204
  10. UPTRAVI [Suspect]
     Active Substance: SELEXIPAG
     Dosage: 1400 MCG IN MORNING AND 1600 MCG IN EVENING, BID
     Dates: start: 20251205, end: 202512
  11. UPTRAVI [Suspect]
     Active Substance: SELEXIPAG
     Dosage: 1200 MCG ONCE IN THE MORNING AND 1400 MCG ONCE IN THE EVENING, BID
     Dates: start: 202512, end: 202512
  12. UPTRAVI [Suspect]
     Active Substance: SELEXIPAG
     Dosage: 1000 MCG, BID
     Dates: start: 202512
  13. WINREVAIR [Concomitant]
     Active Substance: SOTATERCEPT-CSRK
     Indication: Product used for unknown indication
     Dosage: UNK

REACTIONS (15)
  - Peripheral swelling [Unknown]
  - Dehydration [Unknown]
  - Vomiting [Recovered/Resolved]
  - Diarrhoea [Recovered/Resolved]
  - Chest pain [Recovered/Resolved]
  - Dizziness [Unknown]
  - Nausea [Recovering/Resolving]
  - Headache [Unknown]
  - Arthralgia [Recovering/Resolving]
  - Pain in extremity [Recovering/Resolving]
  - Dyspnoea exertional [Unknown]
  - Epistaxis [Unknown]
  - Blood pressure increased [Unknown]
  - Malaise [Unknown]
  - Therapy partial responder [Recovered/Resolved]

NARRATIVE: CASE EVENT DATE: 20250101
